FAERS Safety Report 4739087-5 (Version None)
Quarter: 2005Q3

REPORT INFORMATION
  Report Type: 
  Country: None (occurrence: None)
  Receive Date: 20050810
  Receipt Date: 20050412
  Transmission Date: 20060218
  Serious: No
  Sender: FDA-Public Use
  Company Number: US-GLAXOSMITHKLINE-A0553795A

PATIENT
  Age: 72 Year
  Sex: Female

DRUGS (12)
  1. PAXIL CR [Suspect]
     Dosage: 12.5MG PER DAY
     Route: 048
     Dates: start: 20020101
  2. PAXIL [Suspect]
     Route: 048
  3. ZOLOFT [Suspect]
     Indication: DRUG USE FOR UNKNOWN INDICATION
     Route: 065
  4. PREDNISONE [Concomitant]
  5. LOTREL [Concomitant]
  6. LIPITOR [Concomitant]
  7. SINGULAIR [Concomitant]
  8. ZANTAC [Concomitant]
  9. PREVACID [Concomitant]
  10. ZYRTEC [Concomitant]
  11. VITAMINS [Concomitant]
  12. HYDROCHLOROTHIAZIDE [Concomitant]

REACTIONS (7)
  - DRUG INEFFECTIVE [None]
  - HYPERSENSITIVITY [None]
  - LARYNGEAL DISORDER [None]
  - OESOPHAGITIS [None]
  - PHARYNGOLARYNGEAL PAIN [None]
  - RASH [None]
  - SOMNOLENCE [None]
